FAERS Safety Report 7586447-3 (Version None)
Quarter: 2011Q3

REPORT INFORMATION
  Report Type: 
  Country: None (occurrence: None)
  Receive Date: 20110701
  Receipt Date: 20110622
  Transmission Date: 20111222
  Serious: Yes (Hospitalization)
  Sender: FDA-Public Use
  Company Number: B0730232A

PATIENT
  Sex: Female
  Weight: 75.1 kg

DRUGS (3)
  1. CARBOPLATIN [Suspect]
     Indication: BREAST CANCER
     Dosage: 220MG CYCLIC
     Route: 042
     Dates: start: 20110620
  2. PACLITAXEL [Suspect]
     Indication: BREAST CANCER
     Dosage: 140MG WEEKLY
     Route: 042
     Dates: start: 20110620
  3. LAPATINIB [Suspect]
     Indication: BREAST CANCER
     Dosage: 750MG PER DAY
     Route: 048
     Dates: start: 20110620

REACTIONS (2)
  - DIZZINESS [None]
  - VOMITING [None]
